FAERS Safety Report 18158655 (Version 2)
Quarter: 2020Q3

REPORT INFORMATION
  Report Type: Report from Study
  Country: PE (occurrence: PE)
  Receive Date: 20200817
  Receipt Date: 20200825
  Transmission Date: 20201103
  Serious: Yes (Other)
  Sender: FDA-Public Use
  Company Number: NVSC2020PE225410

PATIENT
  Age: 43 Year
  Sex: Male

DRUGS (2)
  1. TASIGNA [Suspect]
     Active Substance: NILOTINIB
     Indication: CHRONIC MYELOID LEUKAEMIA
     Dosage: 400 MG, BID
     Route: 048
     Dates: start: 20180522
  2. TASIGNA [Suspect]
     Active Substance: NILOTINIB
     Dosage: 800 MG, BID
     Route: 048

REACTIONS (3)
  - COVID-19 [Unknown]
  - Overdose [Unknown]
  - Pyrexia [Unknown]

NARRATIVE: CASE EVENT DATE: 202008
